FAERS Safety Report 10788747 (Version 1)
Quarter: 2015Q1

REPORT INFORMATION
  Report Type: Report from Study
  Country: ES (occurrence: ES)
  Receive Date: 20150212
  Receipt Date: 20150212
  Transmission Date: 20150721
  Serious: Yes (Hospitalization, Other)
  Sender: FDA-Public Use
  Company Number: ES-SA-2015SA015987

PATIENT
  Age: 89 Year
  Sex: Male

DRUGS (3)
  1. NOLOTIL [Suspect]
     Active Substance: METAMIZOLE
     Dosage: STRENGTH:0.4 G / ML
     Route: 065
     Dates: start: 201501
  2. CLEXANE [Suspect]
     Active Substance: ENOXAPARIN SODIUM
     Indication: PREOPERATIVE CARE
     Route: 065
     Dates: start: 20150112, end: 20150120
  3. CEFAZOLINA [Suspect]
     Active Substance: CEFAZOLIN SODIUM
     Route: 042
     Dates: start: 201501

REACTIONS (1)
  - Toxic skin eruption [Recovering/Resolving]

NARRATIVE: CASE EVENT DATE: 20150117
